FAERS Safety Report 5879042-5 (Version None)
Quarter: 2008Q3

REPORT INFORMATION
  Report Type: 
  Country: None (occurrence: None)
  Receive Date: 20080912
  Receipt Date: 20080815
  Transmission Date: 20090109
  Serious: Yes (Other)
  Sender: FDA-Public Use
  Company Number: US-BRISTOL-MYERS SQUIBB COMPANY-14304729

PATIENT
  Sex: Male

DRUGS (1)
  1. SINEMET CR [Suspect]

REACTIONS (1)
  - MALIGNANT MELANOMA [None]
